FAERS Safety Report 26129177 (Version 1)
Quarter: 2025Q4

REPORT INFORMATION
  Report Type: Spontaneous
  Country: CH (occurrence: CH)
  Receive Date: 20251208
  Receipt Date: 20251208
  Transmission Date: 20260117
  Serious: Yes (Other)
  Sender: ORGANON
  Company Number: None

PATIENT
  Age: 64 Year
  Sex: Female

DRUGS (22)
  1. LOSARTAN POTASSIUM [Interacting]
     Active Substance: LOSARTAN POTASSIUM
     Dosage: 100 MILLIGRAM, QD
  2. SODIUM PHOSPHATE [Interacting]
     Active Substance: SODIUM PHOSPHATE
     Dosage: 276 MILLIGRAM, Q6H
  3. PANTOZOL [Interacting]
     Active Substance: PANTOPRAZOLE SODIUM
     Dosage: 40 MILLIGRAM, QD
  4. LASIX [Interacting]
     Active Substance: FUROSEMIDE
     Dosage: UNK
  5. PREGABALIN [Interacting]
     Active Substance: PREGABALIN
     Dosage: 25 MILLIGRAM, Q12H
  6. METAMIZOLE [Interacting]
     Active Substance: METAMIZOLE
     Dosage: 1000 MILLIGRAM, TOTAL
     Dates: start: 20251113, end: 20251113
  7. METAMIZOLE [Interacting]
     Active Substance: METAMIZOLE
     Dosage: 1000 MILLIGRAM, TOTAL
     Dates: start: 20251115, end: 20251115
  8. VANCOCIN [Interacting]
     Active Substance: VANCOMYCIN HYDROCHLORIDE
     Dosage: 1500 MILLIGRAM, Q12H
     Dates: start: 202510, end: 20251114
  9. VANCOCIN [Interacting]
     Active Substance: VANCOMYCIN HYDROCHLORIDE
     Dosage: 1400 MILLIGRAM, Q12H
     Dates: start: 20251115, end: 20251116
  10. HYDROMORPHONE [Concomitant]
     Active Substance: HYDROMORPHONE
     Dosage: UNK
  11. CHOLESTYRAMINE [Concomitant]
     Active Substance: CHOLESTYRAMINE
     Dosage: UNK
  12. URSODIOL [Concomitant]
     Active Substance: URSODIOL
     Dosage: UNK
  13. DIFLUCAN [Concomitant]
     Active Substance: FLUCONAZOLE
     Dosage: UNK
  14. FENTANYL CITRATE [Concomitant]
     Active Substance: FENTANYL CITRATE
     Dosage: UNK
  15. POTASSIUM BICARBONATE\POTASSIUM CITRATE [Concomitant]
     Active Substance: POTASSIUM BICARBONATE\POTASSIUM CITRATE
     Dosage: UNK
  16. MOVICOL [Concomitant]
     Active Substance: POLYETHYLENE GLYCOL 3350\POTASSIUM CHLORIDE\SODIUM BICARBONATE\SODIUM CHLORIDE
     Dosage: UNK
  17. METHADONE [Concomitant]
     Active Substance: METHADONE HYDROCHLORIDE
     Dosage: UNK
  18. SODIUM PICOSULFATE [Concomitant]
     Active Substance: SODIUM PICOSULFATE
     Dosage: UNK
  19. METAMUCIL [Concomitant]
     Active Substance: PLANTAGO SEED
     Dosage: UNK
  20. FRAGMIN [Concomitant]
     Active Substance: DALTEPARIN SODIUM
     Dosage: UNK
  21. Paspertin [Concomitant]
     Dosage: UNK
  22. MEROPENEM [Concomitant]
     Active Substance: MEROPENEM

REACTIONS (2)
  - Poisoning [Recovered/Resolved]
  - Acute kidney injury [Not Recovered/Not Resolved]

NARRATIVE: CASE EVENT DATE: 20251116
